FAERS Safety Report 9511249 (Version 1)
Quarter: 2013Q3

REPORT INFORMATION
  Report Type: Spontaneous
  Country: US (occurrence: None)
  Receive Date: 20130906
  Receipt Date: 20130906
  Transmission Date: 20140515
  Serious: Yes (Disabling, Other)
  Sender: FDA-Public Use
  Company Number: 2013P1018723

PATIENT
  Age: 64 Year
  Sex: Female
  Weight: 49.9 kg

DRUGS (1)
  1. RIFAMPIN [Suspect]
     Indication: TUBERCULOSIS
     Route: 048
     Dates: start: 20130801, end: 20130815

REACTIONS (16)
  - Malaise [None]
  - Back pain [None]
  - Bone pain [None]
  - Headache [None]
  - Pyrexia [None]
  - Myalgia [None]
  - Flank pain [None]
  - Nocturia [None]
  - Bone marrow failure [None]
  - Asthenia [None]
  - Chromaturia [None]
  - Leukopenia [None]
  - Dizziness [None]
  - Impaired work ability [None]
  - Decreased activity [None]
  - Lymphocyte count decreased [None]
